FAERS Safety Report 18565698 (Version 1)
Quarter: 2020Q4

REPORT INFORMATION
  Report Type: Spontaneous
  Country: US (occurrence: US)
  Receive Date: 20201201
  Receipt Date: 20201201
  Transmission Date: 20210114
  Serious: Yes (Hospitalization, Other)
  Sender: FDA-Public Use
  Company Number: US-PURDUE-USA-2020-0160618

PATIENT
  Age: 61 Year
  Sex: Male

DRUGS (1)
  1. OXYCONTIN [Suspect]
     Active Substance: OXYCODONE HYDROCHLORIDE
     Indication: PRODUCT USED FOR UNKNOWN INDICATION
     Dosage: 15 MG, Q2- 3H
     Route: 048

REACTIONS (4)
  - Tachycardia [Unknown]
  - Overdose [Recovered/Resolved]
  - Drug dependence [Unknown]
  - Brain injury [Unknown]

NARRATIVE: CASE EVENT DATE: 20180606
